FAERS Safety Report 16844587 (Version 1)
Quarter: 2019Q3

REPORT INFORMATION
  Report Type: Spontaneous
  Country: US (occurrence: US)
  Receive Date: 20190924
  Receipt Date: 20190924
  Transmission Date: 20191005
  Serious: Yes (Hospitalization)
  Sender: FDA-Public Use
  Company Number: US-MYLANLABS-2019M1089484

PATIENT
  Age: 19 Year
  Sex: Female

DRUGS (5)
  1. PREDNISONE. [Suspect]
     Active Substance: PREDNISONE
     Indication: CHEST PAIN
     Route: 065
  2. PREDNISONE. [Suspect]
     Active Substance: PREDNISONE
     Indication: BACK PAIN
  3. AZITHROMYCIN ANHYDROUS. [Concomitant]
     Active Substance: AZITHROMYCIN ANHYDROUS
     Indication: PNEUMONIA
     Route: 065
  4. ACICLOVIR [Suspect]
     Active Substance: ACYCLOVIR
     Indication: HERPES ZOSTER CUTANEOUS DISSEMINATED
     Route: 042
  5. KETOROLAC [Suspect]
     Active Substance: KETOROLAC TROMETHAMINE
     Indication: HERPES ZOSTER CUTANEOUS DISSEMINATED
     Route: 042

REACTIONS (4)
  - Acute kidney injury [Recovered/Resolved]
  - Herpes zoster meningoencephalitis [Recovered/Resolved]
  - Pulmonary oedema [Recovered/Resolved]
  - Herpes zoster cutaneous disseminated [Recovered/Resolved]
